FAERS Safety Report 4632754-3 (Version None)
Quarter: 2005Q2

REPORT INFORMATION
  Report Type: 
  Country: None (occurrence: None)
  Receive Date: 20050408
  Receipt Date: 20050408
  Transmission Date: 20051028
  Serious: Yes (Disabling)
  Sender: FDA-Public Use
  Company Number: None

PATIENT
  Age: 73 Year
  Sex: Male
  Weight: 104.3273 kg

DRUGS (4)
  1. ZICAM LIQUID NASAL GEL 0.05% OXYMETOLOZINE HCL [Suspect]
     Indication: NASAL CONGESTION
     Dosage: SPRAYED QID NASAL
     Route: 045
     Dates: start: 20031230, end: 20040103
  2. ZICAM LIQUID NASAL GEL 0.05% OXYMETOLOZINE HCL [Suspect]
     Indication: RHINITIS
     Dosage: SPRAYED QID NASAL
     Route: 045
     Dates: start: 20031230, end: 20040103
  3. LIPITOR [Concomitant]
  4. ECOTRIN [Concomitant]

REACTIONS (2)
  - ANOSMIA [None]
  - PAROSMIA [None]
